FAERS Safety Report 5013126-9 (Version None)
Quarter: 2006Q2

REPORT INFORMATION
  Report Type: 
  Country: None (occurrence: None)
  Receive Date: 20060530
  Receipt Date: 20060302
  Transmission Date: 20061013
  Serious: Yes (Life-Threatening, Other)
  Sender: FDA-Public Use
  Company Number: US-GLAXOSMITHKLINE-A0595914A

PATIENT
  Age: 22 Year
  Sex: Female

DRUGS (2)
  1. WELLBUTRIN [Suspect]
     Indication: DEPRESSION
     Dosage: 300MG PER DAY
     Route: 048
  2. NEURONTIN [Concomitant]

REACTIONS (3)
  - CONFUSIONAL STATE [None]
  - DEPRESSION [None]
  - GRAND MAL CONVULSION [None]
